FAERS Safety Report 14034853 (Version 1)
Quarter: 2017Q4

REPORT INFORMATION
  Report Type: Spontaneous
  Country: CL (occurrence: CL)
  Receive Date: 20171003
  Receipt Date: 20171003
  Transmission Date: 20180321
  Serious: Yes (Other)
  Sender: FDA-Public Use
  Company Number: CL-SA-2017SA180653

PATIENT
  Age: 75 Year
  Sex: Male

DRUGS (2)
  1. BCG FOR IMMUNOTHERAPY [Suspect]
     Active Substance: BACILLUS CALMETTE-GUERIN ANTIGEN, UNSPECIFIED SUBSTRAIN
     Indication: BLADDER CANCER STAGE I, WITH CANCER IN SITU
     Dosage: WEEKLY DOSE FOR SIX WEEKS
     Route: 043
  2. DOXORUBICIN [Concomitant]
     Active Substance: DOXORUBICIN
     Dosage: WHICH WAS COMPLETED WITHOUT ANY SIDE EFFECTS
     Route: 065

REACTIONS (9)
  - Prostatitis [Recovering/Resolving]
  - Perineal pain [Recovering/Resolving]
  - Prostatic specific antigen increased [Recovering/Resolving]
  - Cystitis [Recovering/Resolving]
  - Nocturia [Recovering/Resolving]
  - Micturition urgency [Recovering/Resolving]
  - Disseminated Bacillus Calmette-Guerin infection [Recovering/Resolving]
  - Dysuria [Recovering/Resolving]
  - Pollakiuria [Recovering/Resolving]
